FAERS Safety Report 13195021 (Version 2)
Quarter: 2017Q1

REPORT INFORMATION
  Report Type: Spontaneous
  Country: AU (occurrence: AU)
  Receive Date: 20170207
  Receipt Date: 20170308
  Transmission Date: 20170428
  Serious: Yes (Death)
  Sender: FDA-Public Use
  Company Number: AU-ASTRAZENECA-2017SE12789

PATIENT
  Age: 62 Year
  Sex: Male

DRUGS (3)
  1. BRILINTA [Suspect]
     Active Substance: TICAGRELOR
     Indication: ACUTE CORONARY SYNDROME
     Dosage: 180.0MG UNKNOWN
     Route: 048
     Dates: start: 20170115, end: 20170115
  2. ASPIRIN. [Suspect]
     Active Substance: ASPIRIN
     Indication: ACUTE CORONARY SYNDROME
     Dosage: 100.0MG UNKNOWN
     Route: 048
     Dates: start: 20170115, end: 20170115
  3. CLEXANE [Suspect]
     Active Substance: ENOXAPARIN SODIUM
     Indication: ACUTE CORONARY SYNDROME
     Dosage: 60.0MG UNKNOWN
     Route: 058
     Dates: start: 20170115, end: 20170115

REACTIONS (2)
  - Cerebral haemorrhage [Fatal]
  - Brain death [Fatal]

NARRATIVE: CASE EVENT DATE: 20170115
